FAERS Safety Report 16246271 (Version 1)
Quarter: 2019Q2

REPORT INFORMATION
  Report Type: Report from Study
  Country: CN (occurrence: CN)
  Receive Date: 20190426
  Receipt Date: 20190426
  Transmission Date: 20190711
  Serious: Yes (Hospitalization)
  Sender: FDA-Public Use
  Company Number: CN-TAKEDA-2019TUS025157

PATIENT
  Age: 35 Year
  Sex: Male
  Weight: 63.5 kg

DRUGS (6)
  1. VEDOLIZUMAB [Suspect]
     Active Substance: VEDOLIZUMAB
     Indication: CROHN^S DISEASE
     Dosage: UNK
     Route: 042
     Dates: start: 20180523
  2. ENTERAL                            /00463501/ [Concomitant]
     Indication: NUTRITIONAL SUPPLEMENTATION
     Dosage: 400 GRAM, QD
     Route: 048
     Dates: start: 20190306, end: 20190306
  3. LOPERAMIDE HYDROCHLORIDE. [Concomitant]
     Active Substance: LOPERAMIDE HYDROCHLORIDE
     Indication: DIARRHOEA
     Dosage: 2 MILLIGRAM, TID
     Route: 048
     Dates: start: 20190308, end: 20190408
  4. ENTERAL                            /00463501/ [Concomitant]
     Dosage: 200 MILLILITER, QD
     Route: 048
     Dates: start: 20190307, end: 20190307
  5. AZATHIOPRINE. [Concomitant]
     Active Substance: AZATHIOPRINE
     Indication: CROHN^S DISEASE
     Dosage: 50 MILLIGRAM, QD
     Route: 048
     Dates: start: 201305
  6. ENTERAL                            /00463501/ [Concomitant]
     Dosage: 200 MILLILITER, TID
     Route: 048
     Dates: start: 20190308, end: 20190408

REACTIONS (1)
  - Quadriplegia [Recovered/Resolved]

NARRATIVE: CASE EVENT DATE: 20190408
